FAERS Safety Report 9361149 (Version 1)
Quarter: 2013Q2

REPORT INFORMATION
  Report Type: Report from Study
  Country: FR (occurrence: FR)
  Receive Date: 20130621
  Receipt Date: 20130621
  Transmission Date: 20140414
  Serious: Yes (Hospitalization)
  Sender: FDA-Public Use
  Company Number: FR-BAYER-2013-075772

PATIENT
  Age: 54 Year
  Sex: Male

DRUGS (1)
  1. REGORAFENIB [Suspect]

REACTIONS (2)
  - Skin toxicity [None]
  - Radiation skin injury [None]
